FAERS Safety Report 19860788 (Version 1)
Quarter: 2021Q3

REPORT INFORMATION
  Report Type: Spontaneous
  Country: FR (occurrence: FR)
  Receive Date: 20210921
  Receipt Date: 20210921
  Transmission Date: 20211014
  Serious: Yes (Other)
  Sender: FDA-Public Use
  Company Number: FR-TEVA-2021-FR-1953966

PATIENT
  Age: 56 Year
  Sex: Female
  Weight: 102 kg

DRUGS (3)
  1. TERALITHE [Suspect]
     Active Substance: LITHIUM CARBONATE
     Indication: BIPOLAR DISORDER
     Dosage: 800MILLIGRAM
     Route: 048
  2. METFORMINE [Suspect]
     Active Substance: METFORMIN HYDROCHLORIDE
     Route: 065
  3. LEVOTHYROX [Suspect]
     Active Substance: LEVOTHYROXINE
     Route: 065

REACTIONS (2)
  - Wrong dose [Recovered/Resolved]
  - Sedation [Recovered/Resolved]

NARRATIVE: CASE EVENT DATE: 20210821
